FAERS Safety Report 8906571 (Version 1)
Quarter: 2012Q4

REPORT INFORMATION
  Report Type: 
  Country: US (occurrence: US)
  Receive Date: 20121114
  Receipt Date: 20121114
  Transmission Date: 20130627
  Serious: No
  Sender: FDA-Public Use
  Company Number: US-TEVA-367859USA

PATIENT
  Sex: Female

DRUGS (5)
  1. COPAXONE [Suspect]
     Indication: MULTIPLE SCLEROSIS
  2. AMPYRA [Suspect]
     Indication: MULTIPLE SCLEROSIS
     Dosage: every 12 hours
     Route: 048
  3. BACLOFEN [Concomitant]
  4. HYDROCODONE [Concomitant]
  5. ASPIRIN [Concomitant]

REACTIONS (2)
  - Injection site injury [Unknown]
  - Injection site discolouration [Recovering/Resolving]
